FAERS Safety Report 12695973 (Version 1)
Quarter: 2016Q3

REPORT INFORMATION
  Report Type: Spontaneous
  Country: US (occurrence: US)
  Receive Date: 20160829
  Receipt Date: 20160829
  Transmission Date: 20161109
  Serious: No
  Sender: FDA-Public Use
  Company Number: US-MEDA-2016080070

PATIENT
  Sex: Male

DRUGS (3)
  1. MUSE [Suspect]
     Active Substance: ALPROSTADIL
     Indication: ERECTILE DYSFUNCTION
     Route: 066
     Dates: start: 1999, end: 1999
  2. MUSE [Suspect]
     Active Substance: ALPROSTADIL
     Indication: ERECTILE DYSFUNCTION
     Route: 066
     Dates: start: 1999
  3. MUSE [Suspect]
     Active Substance: ALPROSTADIL
     Indication: ERECTILE DYSFUNCTION
     Route: 066

REACTIONS (4)
  - Groin pain [Recovered/Resolved]
  - Drug ineffective [Recovered/Resolved]
  - Perineal pain [Recovered/Resolved]
  - Penile pain [Recovered/Resolved]

NARRATIVE: CASE EVENT DATE: 1999
